FAERS Safety Report 11326604 (Version 1)
Quarter: 2015Q3

REPORT INFORMATION
  Report Type: Report from Study
  Country: US (occurrence: US)
  Receive Date: 20150731
  Receipt Date: 20150731
  Transmission Date: 20151125
  Serious: Yes (Hospitalization)
  Sender: FDA-Public Use
  Company Number: US-BIOGENIDEC-2015BI095113

PATIENT
  Sex: Male

DRUGS (9)
  1. PREDNISONE. [Concomitant]
     Active Substance: PREDNISONE
  2. TECFIDERA [Suspect]
     Active Substance: DIMETHYL FUMARATE
     Indication: MULTIPLE SCLEROSIS
     Route: 048
     Dates: start: 20141013
  3. SULFAMETHOXAZOLE-TRIMETHOPRIM (SMZ) [Concomitant]
     Active Substance: SULFAMETHOXAZOLE\TRIMETHOPRIM
  4. CIPRO [Concomitant]
     Active Substance: CIPROFLOXACIN HYDROCHLORIDE
  5. TIZANIDINE. [Concomitant]
     Active Substance: TIZANIDINE
  6. AMPYRA [Concomitant]
     Active Substance: DALFAMPRIDINE
  7. CEPHALEXIN. [Concomitant]
     Active Substance: CEPHALEXIN
  8. LINZESS [Concomitant]
     Active Substance: LINACLOTIDE
  9. NEXIUM [Concomitant]
     Active Substance: ESOMEPRAZOLE MAGNESIUM

REACTIONS (2)
  - Multiple sclerosis relapse [Not Recovered/Not Resolved]
  - Pyrexia [Not Recovered/Not Resolved]
